FAERS Safety Report 6079109-5 (Version None)
Quarter: 2009Q1

REPORT INFORMATION
  Report Type: 
  Country: None (occurrence: None)
  Receive Date: 20090216
  Receipt Date: 20090206
  Transmission Date: 20090719
  Serious: Yes (Death, Hospitalization)
  Sender: FDA-Public Use
  Company Number: A0719008A

PATIENT
  Age: 48 Year
  Sex: Male
  Weight: 106.8 kg

DRUGS (5)
  1. AVANDIA [Suspect]
     Indication: DIABETES MELLITUS
     Dosage: 4MG PER DAY
     Route: 048
     Dates: end: 20050301
  2. ACCUPRIL [Concomitant]
  3. INSULIN [Concomitant]
  4. LIPITOR [Concomitant]
  5. GLUCOVANCE [Concomitant]

REACTIONS (5)
  - BLOOD CHOLESTEROL INCREASED [None]
  - CARDIAC ARREST [None]
  - CARDIOGENIC SHOCK [None]
  - DEATH [None]
  - MYOCARDIAL INFARCTION [None]
